FAERS Safety Report 15488315 (Version 1)
Quarter: 2018Q4

REPORT INFORMATION
  Report Type: Spontaneous
  Country: US (occurrence: US)
  Receive Date: 20181011
  Receipt Date: 20181011
  Transmission Date: 20190205
  Serious: Yes (Hospitalization)
  Sender: FDA-Public Use
  Company Number: US-PARI RESPIRATORY EQUIPMENT, INC.-2018PAR00067

PATIENT
  Age: 26 Year
  Sex: Male

DRUGS (16)
  1. CLONAZEPAM. [Concomitant]
     Active Substance: CLONAZEPAM
  2. KITABIS PAK [Suspect]
     Active Substance: TOBRAMYCIN
     Indication: CYSTIC FIBROSIS
     Dosage: 1 AMPULE, 2X/DAY
     Route: 055
     Dates: start: 20171208
  3. BISACODYL. [Concomitant]
     Active Substance: BISACODYL
  4. CARBIDOPA AND LEVODOPA [Concomitant]
     Active Substance: CARBIDOPA\LEVODOPA
  5. FLOVENT HFA [Concomitant]
     Active Substance: FLUTICASONE PROPIONATE
  6. PULMOZYME [Concomitant]
     Active Substance: DORNASE ALFA
  7. BACLOFEN. [Concomitant]
     Active Substance: BACLOFEN
  8. SENNA-LAX [Concomitant]
     Active Substance: SENNOSIDES
  9. CETIRIZINE [Concomitant]
     Active Substance: CETIRIZINE HYDROCHLORIDE
  10. ENEMEEZ [Concomitant]
     Active Substance: DOCUSATE SODIUM
  11. MUPIROCIN. [Concomitant]
     Active Substance: MUPIROCIN
  12. POLYETHYLENE GLYCOL [Concomitant]
     Active Substance: POLYETHYLENE GLYCOLS
  13. DAPTOMYCIN. [Concomitant]
     Active Substance: DAPTOMYCIN
  14. TRIHEXYPHENIDYL [Concomitant]
     Active Substance: TRIHEXYPHENIDYL
  15. DANTROLENE. [Concomitant]
     Active Substance: DANTROLENE SODIUM
  16. NYSTAT [Concomitant]
     Active Substance: NYSTATIN

REACTIONS (1)
  - Subcutaneous abscess [Unknown]

NARRATIVE: CASE EVENT DATE: 20180911
